FAERS Safety Report 17745775 (Version 1)
Quarter: 2020Q2

REPORT INFORMATION
  Report Type: Spontaneous
  Country: GB (occurrence: GB)
  Receive Date: 20200505
  Receipt Date: 20200505
  Transmission Date: 20200714
  Serious: Yes (Other)
  Sender: FDA-Public Use
  Company Number: NVSC2020GB120401

PATIENT
  Age: 14 Year
  Sex: Female

DRUGS (4)
  1. METHYLPREDNISOLONE. [Suspect]
     Active Substance: METHYLPREDNISOLONE
     Dosage: LOW DOSE
     Route: 065
     Dates: end: 202002
  2. PREDNISOLONE. [Suspect]
     Active Substance: PREDNISOLONE
     Dosage: LOW DOSE
     Route: 065
     Dates: end: 202002
  3. METHYLPREDNISOLONE. [Suspect]
     Active Substance: METHYLPREDNISOLONE
     Indication: OPTIC NEURITIS
     Dosage: UNK
     Route: 042
     Dates: end: 202002
  4. PREDNISOLONE. [Suspect]
     Active Substance: PREDNISOLONE
     Indication: OPTIC NEURITIS
     Dosage: UNK
     Route: 048
     Dates: end: 202002

REACTIONS (7)
  - Facial paralysis [Unknown]
  - Dysarthria [Unknown]
  - Dysphagia [Unknown]
  - Abdominal pain [Unknown]
  - Optic neuritis [Unknown]
  - Product use issue [Unknown]
  - Depressed mood [Unknown]
